FAERS Safety Report 24661318 (Version 1)
Quarter: 2024Q4

REPORT INFORMATION
  Report Type: Spontaneous
  Country: AT (occurrence: AT)
  Receive Date: 20241125
  Receipt Date: 20241125
  Transmission Date: 20250115
  Serious: Yes (Other)
  Sender: PFIZER
  Company Number: AT-ROCHE-10000128177

PATIENT
  Age: 76 Year
  Sex: Female

DRUGS (12)
  1. CARBOPLATIN [Suspect]
     Active Substance: CARBOPLATIN
     Indication: Small cell lung cancer
     Dosage: UNK
     Route: 065
     Dates: start: 20221214
  2. CARBOPLATIN [Suspect]
     Active Substance: CARBOPLATIN
     Indication: Malignant pleural effusion
     Dosage: 2ND CYCLE
     Dates: start: 20230111
  3. CARBOPLATIN [Suspect]
     Active Substance: CARBOPLATIN
     Dosage: 3RD CYCLE
     Dates: start: 20230201
  4. CARBOPLATIN [Suspect]
     Active Substance: CARBOPLATIN
     Dosage: 4TH CYCLE
     Dates: start: 20230222
  5. ATEZOLIZUMAB [Suspect]
     Active Substance: ATEZOLIZUMAB
     Indication: Small cell lung cancer
     Dosage: 1200 MG, EVERY 3 WEEKS
     Route: 065
     Dates: start: 20221214
  6. ATEZOLIZUMAB [Suspect]
     Active Substance: ATEZOLIZUMAB
     Indication: Malignant pleural effusion
     Dosage: 2ND CYCLE
     Dates: start: 20230111
  7. ATEZOLIZUMAB [Suspect]
     Active Substance: ATEZOLIZUMAB
     Dosage: 3RD CYCLE
     Dates: start: 20230201
  8. ATEZOLIZUMAB [Suspect]
     Active Substance: ATEZOLIZUMAB
     Dosage: 4TH CYCLE
     Dates: start: 20230222
  9. ETOPOSIDE [Suspect]
     Active Substance: ETOPOSIDE
     Indication: Small cell lung cancer
     Dosage: UNK
     Route: 065
     Dates: start: 20221214
  10. ETOPOSIDE [Suspect]
     Active Substance: ETOPOSIDE
     Indication: Malignant pleural effusion
     Dosage: 2ND CYCLE
     Dates: start: 20230111
  11. ETOPOSIDE [Suspect]
     Active Substance: ETOPOSIDE
     Dosage: 3RD CYCLE
     Dates: start: 20230201
  12. ETOPOSIDE [Suspect]
     Active Substance: ETOPOSIDE
     Dosage: 4TH CYCLE
     Dates: start: 20230222

REACTIONS (5)
  - Hypothyroidism [Unknown]
  - Adrenal adenoma [Unknown]
  - Gait disturbance [Unknown]
  - Muscular weakness [Unknown]
  - Neoplasm progression [Unknown]

NARRATIVE: CASE EVENT DATE: 20230601
